FAERS Safety Report 9880833 (Version 2)
Quarter: 2014Q1

REPORT INFORMATION
  Report Type: Spontaneous
  Country: IT (occurrence: IT)
  Receive Date: 20140207
  Receipt Date: 20140219
  Transmission Date: 20141002
  Serious: Yes (Hospitalization)
  Sender: FDA-Public Use
  Company Number: IT-RANBAXY-2014RR-77939

PATIENT
  Age: 36 Year
  Sex: Male

DRUGS (2)
  1. NIMESULIDE [Suspect]
     Indication: TOOTH EXTRACTION
     Dosage: 200 MG/DAY
     Route: 048
     Dates: start: 20140121, end: 20140125
  2. AUGMENTIN [Suspect]
     Indication: TOOTH EXTRACTION
     Dosage: 2 G/DAY
     Route: 048
     Dates: start: 20140121, end: 20140125

REACTIONS (1)
  - Angioedema [Unknown]
